FAERS Safety Report 21269629 (Version 1)
Quarter: 2022Q3

REPORT INFORMATION
  Report Type: Spontaneous
  Country: US (occurrence: None)
  Receive Date: 20220829
  Receipt Date: 20220829
  Transmission Date: 20221026
  Serious: No
  Sender: FDA-Public Use
  Company Number: None

PATIENT
  Age: 65 Year
  Sex: Female
  Weight: 85.73 kg

DRUGS (6)
  1. IBRANCE [Suspect]
     Active Substance: PALBOCICLIB
     Indication: Breast cancer female
     Dosage: OTHER FREQUENCY : 21D ON 7D OFF;?
     Route: 048
     Dates: start: 202207
  2. ASPIRIN [Concomitant]
  3. ATIVAN [Concomitant]
  4. LETROZOLE [Concomitant]
  5. ROSUVASTATIN [Concomitant]
  6. VALSARTAN-HYDROCHLOROTHIAZIDE [Concomitant]

REACTIONS (2)
  - White blood cell count decreased [None]
  - Therapy interrupted [None]
